FAERS Safety Report 24830083 (Version 1)
Quarter: 2025Q1

REPORT INFORMATION
  Report Type: Spontaneous
  Country: US (occurrence: None)
  Receive Date: 20250109
  Receipt Date: 20250109
  Transmission Date: 20250408
  Serious: Yes (Death)
  Sender: FDA-CTU
  Company Number: None

PATIENT
  Age: 59 Year
  Sex: Male
  Weight: 99.79 kg

DRUGS (1)
  1. OZEMPIC [Suspect]
     Active Substance: SEMAGLUTIDE
     Dosage: FREQUENCY : WEEKLY;?

REACTIONS (5)
  - Sepsis [None]
  - Perforation [None]
  - Dialysis [None]
  - Ischaemia [None]
  - Acute kidney injury [None]

NARRATIVE: CASE EVENT DATE: 20250109
